FAERS Safety Report 11895609 (Version 13)
Quarter: 2018Q3

REPORT INFORMATION
  Report Type: Spontaneous
  Country: US (occurrence: US)
  Receive Date: 20160107
  Receipt Date: 20180927
  Transmission Date: 20181010
  Serious: Yes (Other)
  Sender: FDA-Public Use
  Company Number: US-PFIZER INC-2016002816

PATIENT
  Age: 48 Year
  Sex: Female
  Weight: 99.79 kg

DRUGS (45)
  1. LYRICA [Concomitant]
     Active Substance: PREGABALIN
     Dosage: 50 MG, UNK
  2. ULTRAM [Concomitant]
     Active Substance: TRAMADOL HYDROCHLORIDE
     Indication: BACK PAIN
  3. PROTONIX /00661201/ [Concomitant]
     Active Substance: OMEPRAZOLE
     Dosage: 20 MG, DAILY
     Route: 048
  4. AUBAGIO [Concomitant]
     Active Substance: TERIFLUNOMIDE
     Dosage: 7 MG, DAILY
  5. VITAMIN B1 [Concomitant]
     Active Substance: THIAMINE HYDROCHLORIDE
     Dosage: UNK (100 MG?1 MG/ML)
     Route: 030
     Dates: start: 20160520
  6. NEURONTIN [Suspect]
     Active Substance: GABAPENTIN
     Indication: MULTIPLE SCLEROSIS
     Dosage: 600 MG, (5 TIMES DAILY)
     Route: 048
  7. NEURONTIN [Suspect]
     Active Substance: GABAPENTIN
     Indication: MUSCLE SPASMS
     Dosage: 2000 MG, DAILY (5 TIMES DAILY)
     Route: 048
  8. VALIUM [Concomitant]
     Active Substance: DIAZEPAM
     Dosage: 10 MG, 3X/DAY
     Route: 048
  9. VITAMIN B12 [Concomitant]
     Active Substance: CYANOCOBALAMIN
     Dosage: UNK (100 MG?1 MG/ML)
     Route: 030
     Dates: start: 20160520
  10. FERREX 150 FORTE [Concomitant]
     Active Substance: CYANOCOBALAMIN\FOLIC ACID\IRON
     Dosage: 1 DF, DAILY
     Route: 048
  11. NITROSTAT [Concomitant]
     Active Substance: NITROGLYCERIN
     Dosage: 0.6 MG, AS NEEDED (AS NEEDED, MAY REPEAT UP TO 3 TIMES)
     Route: 060
  12. NUCYNTA [Concomitant]
     Active Substance: TAPENTADOL HYDROCHLORIDE
     Indication: BACK PAIN
  13. IRON DEXTRAN [Concomitant]
     Active Substance: IRON DEXTRAN
     Dosage: UNK
     Dates: start: 20160520
  14. ULTRAM [Concomitant]
     Active Substance: TRAMADOL HYDROCHLORIDE
     Indication: NECK PAIN
     Dosage: 50 MG, AS NEEDED (1?2 PO 4?6 HOURS AS NEEDED)
     Route: 048
     Dates: start: 20160520
  15. COMBIVENT RESPIMAT [Concomitant]
     Active Substance: ALBUTEROL SULFATE\IPRATROPIUM BROMIDE
     Dosage: 2 DF, AS NEEDED (2 PUFFS QID PRN) (20?100 MCG/ACT AERS)
  16. KLOR?CON M10 [Concomitant]
     Active Substance: POTASSIUM CHLORIDE
     Dosage: 10 MEQ, 2X/DAY
     Route: 048
  17. VITAMIN D [Concomitant]
     Active Substance: CHOLECALCIFEROL
     Dosage: 50000 IU, WEEKLY
     Route: 048
  18. AUBAGIO [Concomitant]
     Active Substance: TERIFLUNOMIDE
     Dosage: 14 MG, DAILY
     Route: 048
     Dates: start: 20170106
  19. NUCYNTA [Concomitant]
     Active Substance: TAPENTADOL HYDROCHLORIDE
     Indication: BREAKTHROUGH PAIN
  20. NEURONTIN [Suspect]
     Active Substance: GABAPENTIN
     Indication: PAIN IN EXTREMITY
     Dosage: 100 MG (5 TIMES A DAY)
     Route: 048
  21. NEURONTIN [Suspect]
     Active Substance: GABAPENTIN
     Indication: SPINAL PAIN
  22. IRON [Concomitant]
     Active Substance: IRON
     Dosage: 3 DF, 2X/DAY (PILLS)
  23. BUTRANS [Concomitant]
     Active Substance: BUPRENORPHINE
     Indication: NECK PAIN
     Dosage: UNK UNK, WEEKLY (10 MCG/HR)
  24. BUTRANS [Concomitant]
     Active Substance: BUPRENORPHINE
     Indication: BACK PAIN
  25. ZOFRAN [Concomitant]
     Active Substance: ONDANSETRON HYDROCHLORIDE
     Dosage: 8 MG, AS NEEDED (3X A DAY PRN)
     Route: 048
  26. CYMBALTA [Concomitant]
     Active Substance: DULOXETINE HYDROCHLORIDE
     Indication: BACK PAIN
  27. ZANAFLEX [Concomitant]
     Active Substance: TIZANIDINE HYDROCHLORIDE
     Dosage: UNK UNK, 3X/DAY (2 CAPSULE(S) BY MOUTH AT BED TIME AND AT 1 CAPSULE BY MOUTH TWICE A DAY)
     Dates: start: 20161209
  28. NEURONTIN [Suspect]
     Active Substance: GABAPENTIN
     Indication: PAIN IN EXTREMITY
     Dosage: 600 MG, 4X/DAY
     Route: 048
     Dates: start: 20160520
  29. CYMBALTA [Concomitant]
     Active Substance: DULOXETINE HYDROCHLORIDE
     Indication: SPINAL PAIN
     Dosage: 30 MG, DAILY
     Route: 048
     Dates: start: 20161012
  30. CYMBALTA [Concomitant]
     Active Substance: DULOXETINE HYDROCHLORIDE
     Indication: NECK PAIN
  31. AZOR [Concomitant]
     Active Substance: AMLODIPINE BESYLATE\OLMESARTAN MEDOXOMIL
     Indication: HYPERTENSION
     Dosage: UNK [AMLODIPINE BESILATE: 10MG, OLMESARTAN MEDOXOMIL: 20 MG]
     Dates: start: 20160520
  32. NUVIGIL [Concomitant]
     Active Substance: ARMODAFINIL
     Dosage: 250 MG, 1X/DAY (EACH AM)
     Dates: start: 20160816
  33. FLOVENT HFA [Concomitant]
     Active Substance: FLUTICASONE PROPIONATE
     Dosage: 1 DF, 2X/DAY
  34. VENTOLIN HFA [Concomitant]
     Active Substance: ALBUTEROL SULFATE
     Dosage: 2 DF, AS NEEDED (2 PUFFS QID PRN)(1Q8 (90 BASE) MCG/ACT)
  35. NUCYNTA [Concomitant]
     Active Substance: TAPENTADOL HYDROCHLORIDE
     Indication: NECK PAIN
     Dosage: 100 MG, AS NEEDED (1 TABLET(S) TWICE A DAY)
     Route: 048
     Dates: start: 20160520
  36. NEURONTIN [Suspect]
     Active Substance: GABAPENTIN
     Indication: NECK PAIN
  37. AZOR [Concomitant]
     Active Substance: AMLODIPINE BESYLATE\OLMESARTAN MEDOXOMIL
     Dosage: 1 DF, DAILY [AMLODIPINE BESILATE 5 MG]/[OLMESARTAN MEDOXOMIL 20 MG]
     Route: 048
  38. VITAMIN D3 [Concomitant]
     Active Substance: CHOLECALCIFEROL
     Dosage: 50000 IU, WEEKLY
     Route: 048
  39. OTRIM [Concomitant]
     Dosage: UNK
  40. NEURONTIN [Suspect]
     Active Substance: GABAPENTIN
     Indication: PAIN
     Dosage: 600 MG, 3X/DAY
     Route: 048
  41. NEURONTIN [Suspect]
     Active Substance: GABAPENTIN
     Indication: BACK PAIN
  42. PROTONIX /00661201/ [Concomitant]
     Active Substance: OMEPRAZOLE
     Dosage: 40 MG, 1X/DAY
     Route: 048
     Dates: start: 20170606
  43. IRON [Concomitant]
     Active Substance: IRON
     Dosage: UNK (EVERY THREE MONTHS)
     Route: 042
  44. LASIX [Concomitant]
     Active Substance: FUROSEMIDE
     Indication: LYMPHOEDEMA
     Dosage: 40 MG, 2X/DAY
     Route: 048
  45. BELSOMRA [Concomitant]
     Active Substance: SUVOREXANT
     Dosage: 20 MG, AS NEEDED (ONE PO HS PRN)
     Route: 048

REACTIONS (46)
  - Hypovitaminosis [Unknown]
  - Vision blurred [Unknown]
  - Thermal burn [Unknown]
  - Joint swelling [Unknown]
  - Pulmonary mass [Unknown]
  - Arthralgia [Unknown]
  - Amnesia [Unknown]
  - Splenic neoplasm malignancy unspecified [Not Recovered/Not Resolved]
  - Anaemia [Not Recovered/Not Resolved]
  - Pain in extremity [Unknown]
  - Eye pain [Unknown]
  - Occipital neuralgia [Unknown]
  - Facial wasting [Unknown]
  - Erythema [Unknown]
  - Malaise [Unknown]
  - Spinal osteoarthritis [Unknown]
  - Swelling [Not Recovered/Not Resolved]
  - Vitamin B12 deficiency [Unknown]
  - Gait disturbance [Unknown]
  - Cognitive disorder [Unknown]
  - Osteoarthritis [Unknown]
  - Paraesthesia [Unknown]
  - Disturbance in attention [Unknown]
  - Drug ineffective for unapproved indication [Recovered/Resolved]
  - Burning sensation [Unknown]
  - Temperature intolerance [Unknown]
  - Lymphoedema [Recovering/Resolving]
  - Arthritis [Unknown]
  - Asthenia [Unknown]
  - Fatigue [Unknown]
  - Hypertension [Recovering/Resolving]
  - Headache [Unknown]
  - Tenderness [Unknown]
  - Tonsillar inflammation [Unknown]
  - Joint warmth [Unknown]
  - Hypoaesthesia [Unknown]
  - Eye swelling [Unknown]
  - Renal neoplasm [Not Recovered/Not Resolved]
  - Lung neoplasm malignant [Unknown]
  - Serum ferritin decreased [Unknown]
  - Joint effusion [Unknown]
  - Off label use [Unknown]
  - Spinal pain [Unknown]
  - Tremor [Unknown]
  - Muscle spasms [Unknown]
  - Joint range of motion decreased [Unknown]

NARRATIVE: CASE EVENT DATE: 2006
